FAERS Safety Report 9741530 (Version 1)
Quarter: 2013Q4

REPORT INFORMATION
  Report Type: Spontaneous
  Country: IT (occurrence: IT)
  Receive Date: 20131210
  Receipt Date: 20131210
  Transmission Date: 20140711
  Serious: Yes (Death)
  Sender: FDA-Public Use
  Company Number: IT-ROCHE-1315835

PATIENT
  Age: 71 Year
  Sex: Male

DRUGS (1)
  1. ALTEPLASE [Suspect]
     Indication: ISCHAEMIC STROKE
     Dosage: STARTED WITH A 6 MG BOLUS (63 MG,1 IN 1 ONCE)
     Route: 042

REACTIONS (6)
  - Haemorrhage intracranial [Fatal]
  - Subarachnoid haemorrhage [Fatal]
  - Subdural haemorrhage [Fatal]
  - Cerebral haemorrhage [Fatal]
  - Coma [Fatal]
  - Blood fibrinogen decreased [Fatal]
